FAERS Safety Report 5186278-8 (Version None)
Quarter: 2006Q4

REPORT INFORMATION
  Report Type: 
  Country: None (occurrence: None)
  Receive Date: 20061213
  Receipt Date: 20061206
  Transmission Date: 20070319
  Serious: Yes (Other)
  Sender: FDA-Public Use
  Company Number: 2006AP001083

PATIENT
  Age: 39 Year
  Sex: Male

DRUGS (3)
  1. PRAVASTATIN SODIUM TABLETS (PRAVASTATIN SODIUM) [Suspect]
     Indication: HYPERCHOLESTEROLAEMIA
     Dosage: 10 MG; QD
  2. BEZAFIBRATE (BEZAFIBRATE) [Suspect]
     Indication: HYPERCHOLESTEROLAEMIA
     Dosage: 200 MG; QD
  3. SIMVASTATIN [Suspect]
     Indication: HYPERCHOLESTEROLAEMIA
     Dosage: 40 MG; QD

REACTIONS (3)
  - CONDITION AGGRAVATED [None]
  - DIZZINESS [None]
  - PSORIASIS [None]
